FAERS Safety Report 18054931 (Version 3)
Quarter: 2021Q3

REPORT INFORMATION
  Report Type: Spontaneous
  Country: FI (occurrence: FI)
  Receive Date: 20200722
  Receipt Date: 20210701
  Transmission Date: 20211014
  Serious: Yes (Life-Threatening)
  Sender: FDA-Public Use
  Company Number: NVSC2020FI198773

PATIENT
  Age: 28 Year
  Sex: Male

DRUGS (5)
  1. QUETIAPINE. [Suspect]
     Active Substance: QUETIAPINE
     Indication: BIPOLAR DISORDER
     Dosage: 900 MG, QD
     Route: 048
     Dates: start: 2006
  2. MEDIPAM [Concomitant]
     Indication: PRODUCT USED FOR UNKNOWN INDICATION
     Dosage: UNK, PRN
     Route: 048
  3. QUETIAPINE. [Suspect]
     Active Substance: QUETIAPINE
     Indication: SLEEP DISORDER
     Dosage: UNK
     Route: 048
     Dates: start: 2006
  4. BISOPROLOL RATIOPHARM [Concomitant]
     Active Substance: BISOPROLOL
     Indication: MIGRAINE PROPHYLAXIS
     Dosage: 10 MG, QD
     Route: 048
  5. QUETIAPINE. [Suspect]
     Active Substance: QUETIAPINE
     Indication: MOOD ALTERED

REACTIONS (20)
  - Anxiety [Recovering/Resolving]
  - Suffocation feeling [Recovering/Resolving]
  - Dysarthria [Recovering/Resolving]
  - Panic attack [Recovering/Resolving]
  - Hypomania [Recovering/Resolving]
  - Sexual dysfunction [Recovering/Resolving]
  - Nightmare [Recovering/Resolving]
  - Paralysis [Recovering/Resolving]
  - Dysphagia [Recovering/Resolving]
  - Drug withdrawal syndrome [Recovering/Resolving]
  - Bulimia nervosa [Recovering/Resolving]
  - Disturbance in attention [Recovering/Resolving]
  - Fear [Recovering/Resolving]
  - Insomnia [Recovering/Resolving]
  - Weight increased [Recovering/Resolving]
  - Paranoia [Recovering/Resolving]
  - Hyporeflexia [Recovering/Resolving]
  - Feeling cold [Recovering/Resolving]
  - Drug dependence [Recovering/Resolving]
  - Vision blurred [Recovering/Resolving]

NARRATIVE: CASE EVENT DATE: 2006
